FAERS Safety Report 22171256 (Version 1)
Quarter: 2023Q2

REPORT INFORMATION
  Report Type: Spontaneous
  Country: US (occurrence: None)
  Receive Date: 20230403
  Receipt Date: 20230403
  Transmission Date: 20230722
  Serious: Yes (Death)
  Sender: FDA-Public Use
  Company Number: None

PATIENT
  Age: 14 Year
  Sex: Male

DRUGS (2)
  1. ETOPOSIDE [Suspect]
     Active Substance: ETOPOSIDE
     Dosage: FREQUENCY : DAILY;?
     Route: 048
     Dates: start: 20220627
  2. CYCLOPHOSPHAMIDE [Suspect]
     Active Substance: CYCLOPHOSPHAMIDE
     Dosage: FREQUENCY : DAILY;?
     Route: 048
     Dates: start: 20211116

REACTIONS (2)
  - Pyrexia [None]
  - Neoplasm malignant [None]

NARRATIVE: CASE EVENT DATE: 20230401
